FAERS Safety Report 7002082-X (Version None)
Quarter: 2010Q3

REPORT INFORMATION
  Report Type: 
  Country: None (occurrence: None)
  Receive Date: 20100920
  Receipt Date: 20100414
  Transmission Date: 20110219
  Serious: Yes (Hospitalization)
  Sender: FDA-Public Use
  Company Number: US-ASTRAZENECA-2006UW10794

PATIENT
  Age: 8621 Day
  Sex: Male
  Weight: 195 kg

DRUGS (14)
  1. SEROQUEL [Suspect]
     Indication: SCHIZOPHRENIA
     Dosage: 25 MG THREE TIMES A DAY,THEN INCREASED UPTO 400 MG DAILY
     Route: 048
     Dates: start: 20070618
  2. SEROQUEL [Suspect]
     Dosage: 100 MG TO 200 MG THREE TIMES A DAY
     Route: 048
     Dates: start: 20070619, end: 20071201
  3. RISPERDAL [Concomitant]
     Dates: start: 20090101
  4. ABILIFY [Concomitant]
     Dates: start: 20080101
  5. EFFEXOR [Concomitant]
     Indication: DEPRESSION
     Dosage: 37.5 MG THREE TIMES A DAY ,THEN INCREASE UPTO 75 MG  THREE TIMES A DAY
     Dates: start: 20070618
  6. EFFEXOR [Concomitant]
     Dates: start: 20070101, end: 20080404
  7. THORAZINE [Concomitant]
     Dates: start: 20070627, end: 20090101
  8. CELEXA [Concomitant]
     Dosage: 20-40 MG
     Dates: start: 20080404
  9. ATENOLOL [Concomitant]
     Indication: HYPERTENSION
     Dates: start: 20060126
  10. ACETAMINOPHEN AND HYDROCODONE BITARTRATE [Concomitant]
     Dates: start: 20060113
  11. DIAZEPAM [Concomitant]
     Dates: start: 20070522
  12. TENORETIC 100 [Concomitant]
     Dosage: 50/25 DAILY
  13. PROLIXIN [Concomitant]
     Dates: start: 20080101
  14. COGENTIN [Concomitant]
     Dates: start: 20080101

REACTIONS (6)
  - ANGER [None]
  - DIABETES MELLITUS [None]
  - GLUCOSE TOLERANCE IMPAIRED [None]
  - SUICIDAL IDEATION [None]
  - TYPE 2 DIABETES MELLITUS [None]
  - WEIGHT INCREASED [None]
